FAERS Safety Report 11268166 (Version 1)
Quarter: 2015Q3

REPORT INFORMATION
  Report Type: Spontaneous
  Country: US (occurrence: US)
  Receive Date: 20150714
  Receipt Date: 20150714
  Transmission Date: 20151125
  Serious: No
  Sender: FDA-Public Use
  Company Number: US-ASTRAZENECA-2015SE64295

PATIENT
  Age: 26025 Day
  Sex: Male
  Weight: 88.5 kg

DRUGS (3)
  1. OXYCONTIN [Suspect]
     Active Substance: OXYCODONE HYDROCHLORIDE
     Indication: HIP ARTHROPLASTY
     Route: 048
     Dates: start: 20150415
  2. OXYCODONE [Suspect]
     Active Substance: OXYCODONE
     Indication: HIP ARTHROPLASTY
     Route: 048
     Dates: start: 20150415
  3. MOVANTIK [Suspect]
     Active Substance: NALOXEGOL OXALATE
     Indication: CONSTIPATION
     Route: 048
     Dates: start: 20150626, end: 20150626

REACTIONS (4)
  - Diarrhoea [Unknown]
  - Drug withdrawal syndrome [Unknown]
  - Malaise [Unknown]
  - Nausea [Unknown]

NARRATIVE: CASE EVENT DATE: 20150626
